FAERS Safety Report 6170278-5 (Version None)
Quarter: 2009Q2

REPORT INFORMATION
  Report Type: 
  Country: None (occurrence: None)
  Receive Date: 20090428
  Receipt Date: 20090415
  Transmission Date: 20091009
  Serious: Yes (Other)
  Sender: FDA-Public Use
  Company Number: JP-PFIZER INC-2009177411

PATIENT

DRUGS (7)
  1. ZOLOFT [Suspect]
     Indication: DEPRESSION
     Dosage: UNK
     Route: 048
     Dates: start: 20090110, end: 20090117
  2. TOLEDOMIN [Suspect]
     Indication: DEPRESSION
     Dosage: 25 MG, 2X/DAY
     Route: 048
     Dates: start: 20041015, end: 20090109
  3. PAXIL [Concomitant]
     Indication: DEPRESSION
     Dosage: 10 MG, 1X/DAY
     Route: 048
     Dates: start: 20081213, end: 20081220
  4. DEPAS [Concomitant]
     Dosage: UNK
     Route: 051
     Dates: start: 20041015, end: 20090130
  5. MYSLEE [Concomitant]
     Dosage: UNK
     Route: 048
     Dates: start: 20060511
  6. BROTIZOLAM [Concomitant]
     Dosage: UNK
     Route: 048
     Dates: start: 20050510
  7. EVAMYL [Concomitant]
     Dosage: UNK
     Route: 048
     Dates: start: 20061023

REACTIONS (2)
  - EYELID OEDEMA [None]
  - EYELID PTOSIS [None]
